FAERS Safety Report 7494278-8 (Version None)
Quarter: 2011Q2

REPORT INFORMATION
  Report Type: 
  Country: None (occurrence: None)
  Receive Date: 20110520
  Receipt Date: 20110516
  Transmission Date: 20111010
  Serious: Yes (Death, Other)
  Sender: FDA-Public Use
  Company Number: JP-BAYER-2011-035280

PATIENT
  Age: 62 Year
  Sex: Female
  Weight: 74 kg

DRUGS (5)
  1. JUZENTAIHOTO [Concomitant]
     Dosage: DAILY DOSE 5 G
     Route: 048
     Dates: start: 20110420, end: 20110516
  2. LEUCON [Concomitant]
     Dosage: DAILY DOSE 30 MG
     Route: 048
     Dates: start: 20110420, end: 20110516
  3. SELBEX [Concomitant]
     Dosage: DAILY DOSE 50 MG
     Route: 048
     Dates: start: 20110422, end: 20110423
  4. NEXAVAR [Suspect]
     Indication: HEPATIC NEOPLASM MALIGNANT
     Dosage: 200 MG, BID
     Route: 048
     Dates: start: 20110414, end: 20110420
  5. NORVASC [Concomitant]
     Dosage: DAILY DOSE 2.5 MG
     Route: 048
     Dates: end: 20110516

REACTIONS (4)
  - HEPATIC FUNCTION ABNORMAL [None]
  - NEOPLASM MALIGNANT [None]
  - PYREXIA [None]
  - INSOMNIA [None]
